FAERS Safety Report 5380929-0 (Version None)
Quarter: 2007Q2

REPORT INFORMATION
  Report Type: 
  Country: None (occurrence: None)
  Receive Date: 20070629
  Receipt Date: 20061206
  Transmission Date: 20071010
  Serious: Yes (Hospitalization)
  Sender: FDA-Public Use
  Company Number: US200612001184

PATIENT
  Age: 74 Year
  Sex: Male

DRUGS (2)
  1. HUMALOG [Suspect]
     Indication: DIABETES MELLITUS INSULIN-DEPENDENT
     Dosage: 5 U, EACH MORNING, SUBCUTANEOUS; 8 U, EACH EVENING, SUBCUTANEOUS
  2. HUMULIN N [Suspect]
     Indication: DIABETES MELLITUS INSULIN-DEPENDENT
     Dosage: 25 U, EACH MORNING, SUBCUTANEOUS; 30 U, OTHER, SUBCUTANEOUS
     Route: 058

REACTIONS (1)
  - CORONARY ARTERY OCCLUSION [None]
